FAERS Safety Report 22196608 (Version 1)
Quarter: 2023Q2

REPORT INFORMATION
  Report Type: Spontaneous
  Country: US (occurrence: US)
  Receive Date: 20230411
  Receipt Date: 20230411
  Transmission Date: 20230721
  Serious: Yes (Other)
  Sender: FDA-Public Use
  Company Number: US-CHEPLA-2023004518

PATIENT
  Sex: Male
  Weight: 83.910 kg

DRUGS (5)
  1. HYDROXYUREA [Suspect]
     Active Substance: HYDROXYUREA
     Indication: Thrombocytosis
     Dosage: CHEMO PILLS?DAILY DOSE: 1000 MILLIGRAM
     Dates: start: 1998
  2. LISINOPRIL [Concomitant]
     Active Substance: LISINOPRIL
     Dosage: ABOUT 2 YEARS AGO
  3. FOLIC ACID [Concomitant]
     Active Substance: FOLIC ACID
     Indication: Supplementation therapy
  4. VITAMIN B12 [Concomitant]
     Active Substance: CYANOCOBALAMIN
     Dosage: DAILY DOSE: 1000 MICROGRAM
  5. VITAMIN D3 [Concomitant]
     Active Substance: CHOLECALCIFEROL
     Dosage: DAILY DOSE: 125 MICROGRAM

REACTIONS (5)
  - Chronic kidney disease [Unknown]
  - Haemorrhage [Unknown]
  - Constipation [Unknown]
  - Anaemia [Unknown]
  - Product use in unapproved indication [Unknown]
